FAERS Safety Report 4500745-9 (Version None)
Quarter: 2004Q4

REPORT INFORMATION
  Report Type: 
  Country: None (occurrence: None)
  Receive Date: 20041109
  Receipt Date: 20041022
  Transmission Date: 20050328
  Serious: Yes (Other)
  Sender: FDA-Public Use
  Company Number: USA041081982

PATIENT
  Sex: Male
  Weight: 364 kg

DRUGS (1)
  1. XIGRIS [Suspect]
     Indication: SEPSIS
     Dosage: 24 UG/KG/HR
     Dates: start: 20041007, end: 20041011

REACTIONS (2)
  - DISEASE RECURRENCE [None]
  - SEPTIC SHOCK [None]
